FAERS Safety Report 24100541 (Version 1)
Quarter: 2024Q3

REPORT INFORMATION
  Report Type: Spontaneous
  Country: CA (occurrence: CA)
  Receive Date: 20240717
  Receipt Date: 20240717
  Transmission Date: 20241017
  Serious: Yes (Other)
  Sender: CHATTEM
  Company Number: CA-SA-2019SA354845

PATIENT
  Age: 50 Year
  Sex: Female

DRUGS (2)
  1. RANITIDINE [Suspect]
     Active Substance: RANITIDINE
     Indication: Product used for unknown indication
     Dosage: DOSE DESCRIPTION : UNK UNK, UNK
     Route: 048
     Dates: start: 20180222
  2. PANTOPRAZOLE [Concomitant]
     Active Substance: PANTOPRAZOLE
     Route: 065

REACTIONS (4)
  - Facial pain [Unknown]
  - Inflammation [Unknown]
  - Erythema [Unknown]
  - Vasculitis [Unknown]

NARRATIVE: CASE EVENT DATE: 20180322
